FAERS Safety Report 5443254-5 (Version None)
Quarter: 2007Q3

REPORT INFORMATION
  Report Type: 
  Country: None (occurrence: None)
  Receive Date: 20070831
  Receipt Date: 20070831
  Transmission Date: 20080115
  Serious: Yes (Hospitalization)
  Sender: FDA-Public Use
  Company Number: None

PATIENT
  Sex: Female
  Weight: 99.3377 kg

DRUGS (19)
  1. PANITUMUMAB [Suspect]
     Indication: SQUAMOUS CELL CARCINOMA
     Dosage: WKLY FOR 7 WEEKS
     Dates: start: 20070807, end: 20070821
  2. CARBOPLATIN [Suspect]
     Dosage: WKLY FOR 7 WEEKS
     Dates: start: 20070807, end: 20070821
  3. AVANDIA [Concomitant]
  4. CLINDAMYCIN HCL [Concomitant]
  5. COMPAZINE [Concomitant]
  6. GLUCOTROL XL [Concomitant]
  7. HYTRIN [Concomitant]
  8. KLONOPIN [Concomitant]
  9. LEXAPRO [Concomitant]
  10. LISINOPRIL [Concomitant]
  11. LIPITOR [Concomitant]
  12. SENNA [Concomitant]
  13. TENORMIN [Concomitant]
  14. TYLENOL [Concomitant]
  15. ZANTAC 150 [Concomitant]
  16. ZOFRAN [Concomitant]
  17. ROXICET [Concomitant]
  18. PACLITAXEL [Suspect]
  19. RADIATION THERAPY [Concomitant]

REACTIONS (9)
  - ASTHENIA [None]
  - DIZZINESS [None]
  - DRUG INTOLERANCE [None]
  - FOOD INTOLERANCE [None]
  - NAUSEA [None]
  - OESOPHAGEAL PAIN [None]
  - ORAL PAIN [None]
  - PAIN [None]
  - VOMITING [None]
